FAERS Safety Report 5827171-4 (Version None)
Quarter: 2008Q3

REPORT INFORMATION
  Report Type: 
  Country: None (occurrence: None)
  Receive Date: 20080730
  Receipt Date: 20080723
  Transmission Date: 20090109
  Serious: Yes (Hospitalization)
  Sender: FDA-Public Use
  Company Number: DE-JNJFOC-20071002145

PATIENT
  Age: 45 Year
  Sex: Male
  Weight: 80 kg

DRUGS (9)
  1. DOXORUBICIN HCL [Suspect]
     Indication: GLIOBLASTOMA
     Route: 042
  2. TEMODAL [Suspect]
     Indication: GLIOBLASTOMA
     Route: 065
  3. KEPPRA [Concomitant]
     Route: 048
  4. KEPPRA [Concomitant]
     Route: 048
  5. LAMICTAL [Concomitant]
     Route: 048
  6. FORTECONTIN [Concomitant]
     Route: 048
  7. PANTOPRAZOLE SODIUM [Concomitant]
     Route: 048
  8. IBUPROFEN [Concomitant]
     Route: 048
  9. FRAXIPARIN [Concomitant]
     Route: 058

REACTIONS (1)
  - PNEUMOCYSTIS JIROVECI PNEUMONIA [None]
